FAERS Safety Report 16525088 (Version 2)
Quarter: 2019Q3

REPORT INFORMATION
  Report Type: Report from Study
  Country: MX (occurrence: MX)
  Receive Date: 20190702
  Receipt Date: 20190708
  Transmission Date: 20191004
  Serious: Yes (Other)
  Sender: FDA-Public Use
  Company Number: PHHY2019MX151647

PATIENT
  Sex: Male
  Weight: 64 kg

DRUGS (4)
  1. GALVUS MET [Suspect]
     Active Substance: METFORMIN HYDROCHLORIDE\VILDAGLIPTIN
     Indication: DIABETES MELLITUS
     Dosage: 1 DF (METFORMIN 850MG, VILDAGLIPTIN 50MG), QD
     Route: 048
  2. SYSTANE ULTRA [Suspect]
     Active Substance: POLYETHYLENE GLYCOL 400\PROPYLENE GLYCOL
     Indication: DRY EYE
     Dosage: 1 DRP, QID (1 DROP IN EACH EYE)
     Route: 047
     Dates: start: 20190625
  3. GAAP [Suspect]
     Active Substance: LATANOPROST
     Indication: GLAUCOMA
     Dosage: 2 DF, QD (ONE IN EACH EYE ONCE DAILY) (6 YEARS AGO)
     Route: 047
  4. CAPTOPRIL. [Concomitant]
     Active Substance: CAPTOPRIL
     Indication: HYPERTENSION
     Dosage: 1 DF, QD (STARTED MANY YEARS AGO AND STOPPED 1 YEAR AGO)
     Route: 048

REACTIONS (7)
  - Pyrexia [Unknown]
  - Dry eye [Not Recovered/Not Resolved]
  - Drug ineffective [Recovered/Resolved]
  - Open angle glaucoma [Not Recovered/Not Resolved]
  - Hepatic infection [Recovered/Resolved]
  - Cataract [Recovered/Resolved]
  - Hypotension [Unknown]
